FAERS Safety Report 18659302 (Version 3)
Quarter: 2021Q3

REPORT INFORMATION
  Report Type: Report from Study
  Country: BR (occurrence: BR)
  Receive Date: 20201224
  Receipt Date: 20210708
  Transmission Date: 20211014
  Serious: No
  Sender: FDA-Public Use
  Company Number: NVSC2020BR308454

PATIENT
  Age: 70 Year
  Sex: Female
  Weight: 82 kg

DRUGS (20)
  1. COSENTYX [Suspect]
     Active Substance: SECUKINUMAB
     Dosage: UNK (2 SYRINGES)
     Route: 065
     Dates: start: 20201123
  2. COSENTYX [Suspect]
     Active Substance: SECUKINUMAB
     Dosage: UNK
     Route: 065
     Dates: start: 20210526
  3. METHOTREXATE. [Concomitant]
     Active Substance: METHOTREXATE
     Indication: RHEUMATIC DISORDER
     Dosage: 20 MG, QW (ONE TABLET)
     Route: 048
  4. FOLIC ACID. [Concomitant]
     Active Substance: FOLIC ACID
     Indication: PAIN
     Dosage: 5 MG, QD (START DATE WAS 4 YEARS AGO)
     Route: 048
     Dates: start: 2017
  5. METHOTREXATE. [Concomitant]
     Active Substance: METHOTREXATE
     Indication: PSORIATIC ARTHROPATHY
  6. LOSARTAN POTASSIUM. [Concomitant]
     Active Substance: LOSARTAN POTASSIUM
     Indication: HYPERTENSION
     Dosage: 100 MG, QD (14 YEARS AGO)
     Route: 048
     Dates: start: 2007
  7. COSENTYX [Suspect]
     Active Substance: SECUKINUMAB
     Dosage: UNK (2 SYRINGES)
     Route: 065
     Dates: start: 20200706
  8. COSENTYX [Suspect]
     Active Substance: SECUKINUMAB
     Dosage: UNK (2 SYRINGES)
     Route: 065
     Dates: start: 20200805
  9. COSENTYX [Suspect]
     Active Substance: SECUKINUMAB
     Dosage: UNK (2 SYRINGES)
     Route: 065
     Dates: start: 20200902
  10. TRAMADOL HCL [Concomitant]
     Active Substance: TRAMADOL HYDROCHLORIDE
     Indication: PAIN
     Dosage: 30 MG, QD (4 YEARS AGO)
     Route: 048
     Dates: start: 2017
  11. ATENOLOL. [Concomitant]
     Active Substance: ATENOLOL
     Indication: HYPERTENSION
     Dosage: 50 MG, QD (14 YEARS AGO)
     Route: 048
     Dates: start: 2007
  12. COSENTYX [Suspect]
     Active Substance: SECUKINUMAB
     Dosage: UNK
     Route: 065
     Dates: start: 202104
  13. FAMOTIDINE. [Concomitant]
     Active Substance: FAMOTIDINE
     Indication: ABDOMINAL DISCOMFORT
     Dosage: 40 MG, QD (4 YEARS AGO)
     Route: 048
     Dates: start: 2017
  14. COSENTYX [Suspect]
     Active Substance: SECUKINUMAB
     Dosage: 300 MG
     Route: 065
     Dates: start: 20201023
  15. AMLODIPINE BESYLATE. [Concomitant]
     Active Substance: AMLODIPINE BESYLATE
     Indication: HYPERTENSION
     Dosage: 5 MG, QD (14 YEARS AGO)
     Route: 048
     Dates: start: 2007
  16. COSENTYX [Suspect]
     Active Substance: SECUKINUMAB
     Indication: PSORIATIC ARTHROPATHY
     Dosage: 300 MG, QMO (2 PENS)
     Route: 058
     Dates: start: 20191104
  17. COSENTYX [Suspect]
     Active Substance: SECUKINUMAB
     Dosage: UNK (2 SYRINGES)
     Route: 065
     Dates: start: 20200608
  18. COSENTYX [Suspect]
     Active Substance: SECUKINUMAB
     Dosage: UNK
     Route: 065
     Dates: start: 20210525
  19. COSENTYX [Suspect]
     Active Substance: SECUKINUMAB
     Dosage: UNK
     Route: 065
  20. CHLORTHALIDONE. [Concomitant]
     Active Substance: CHLORTHALIDONE
     Indication: HYPERTENSION
     Dosage: 25 MG, QD (14 YEARS AGO)
     Route: 048
     Dates: start: 2007

REACTIONS (28)
  - Skin discolouration [Not Recovered/Not Resolved]
  - Nasal congestion [Recovered/Resolved]
  - Inflammation [Not Recovered/Not Resolved]
  - Pruritus [Recovered/Resolved]
  - Poor peripheral circulation [Not Recovered/Not Resolved]
  - Asthenia [Recovered/Resolved]
  - Rhinorrhoea [Recovered/Resolved]
  - Skin lesion [Unknown]
  - Memory impairment [Not Recovered/Not Resolved]
  - Decreased immune responsiveness [Recovered/Resolved]
  - Peripheral swelling [Not Recovered/Not Resolved]
  - Pain in extremity [Not Recovered/Not Resolved]
  - Decreased appetite [Recovered/Resolved]
  - Sinusitis [Recovered/Resolved with Sequelae]
  - Hyperhidrosis [Recovered/Resolved]
  - Pain [Recovered/Resolved]
  - Burning sensation [Not Recovered/Not Resolved]
  - Influenza [Recovered/Resolved]
  - Swelling [Unknown]
  - COVID-19 [Recovered/Resolved]
  - Drug hypersensitivity [Recovered/Resolved]
  - Rhinorrhoea [Recovered/Resolved]
  - Hyperhidrosis [Not Recovered/Not Resolved]
  - Anxiety [Not Recovered/Not Resolved]
  - Erythema [Not Recovered/Not Resolved]
  - Cough [Recovered/Resolved]
  - Fear [Not Recovered/Not Resolved]
  - Chills [Recovered/Resolved]

NARRATIVE: CASE EVENT DATE: 2019
